FAERS Safety Report 19976753 (Version 8)
Quarter: 2022Q1

REPORT INFORMATION
  Report Type: Report from Study
  Country: US (occurrence: US)
  Receive Date: 20211021
  Receipt Date: 20220214
  Transmission Date: 20220423
  Serious: No
  Sender: FDA-Public Use
  Company Number: NVSC2021US238706

PATIENT
  Age: 62 Year
  Sex: Female

DRUGS (6)
  1. COSENTYX [Suspect]
     Active Substance: SECUKINUMAB
     Indication: Psoriasis
     Dosage: 300 MG, QW
     Route: 058
     Dates: start: 20211011
  2. COSENTYX [Suspect]
     Active Substance: SECUKINUMAB
     Dosage: 150 MG (EVERY 4 DAYS)
     Route: 058
  3. COSENTYX [Suspect]
     Active Substance: SECUKINUMAB
     Dosage: 150 MG
     Route: 058
  4. COSENTYX [Suspect]
     Active Substance: SECUKINUMAB
     Dosage: 300 MG, Q2W
     Route: 058
     Dates: start: 20211010
  5. VITAMIN C [Concomitant]
     Active Substance: ASCORBIC ACID
     Indication: Product used for unknown indication
     Dosage: UNK UNK, QD
     Route: 065
  6. VITAMINS [Concomitant]
     Active Substance: VITAMINS
     Indication: Product used for unknown indication
     Dosage: UNK UNK, QD
     Route: 065

REACTIONS (20)
  - Respiratory symptom [Unknown]
  - Upper respiratory tract congestion [Unknown]
  - Dyspnoea [Unknown]
  - Mouth ulceration [Unknown]
  - Skin discolouration [Unknown]
  - Acrochordon [Unknown]
  - Melanocytic naevus [Unknown]
  - Oropharyngeal pain [Not Recovered/Not Resolved]
  - Nasal congestion [Unknown]
  - Fatigue [Unknown]
  - Respiratory tract infection [Unknown]
  - Flushing [Unknown]
  - Respiratory disorder [Unknown]
  - Gingival disorder [Unknown]
  - Weight decreased [Unknown]
  - Inflammation [Unknown]
  - Oral pain [Unknown]
  - Nasopharyngitis [Unknown]
  - Psoriasis [Unknown]
  - Inappropriate schedule of product administration [Unknown]

NARRATIVE: CASE EVENT DATE: 20211014
